FAERS Safety Report 8538653-9 (Version None)
Quarter: 2012Q3

REPORT INFORMATION
  Report Type: 
  Country: None (occurrence: None)
  Receive Date: 20120713
  Receipt Date: 20120706
  Transmission Date: 20120928
  Serious: Yes (Other)
  Sender: FDA-Public Use
  Company Number: GER/UKI/12/0024948

PATIENT
  Age: 68 Year
  Sex: Male

DRUGS (9)
  1. CYCLIZINE (CYLCIZINE) [Concomitant]
  2. DICLOFENAC SODIUM [Concomitant]
  3. DEXAMETHASONE SODIUM PHOSPHATE [Concomitant]
  4. MOVICOL (POLYETHYL. GLYC. W/POTAS. CHLOR./SOD. BICARD.) [Concomitant]
  5. ORAMORPH SR [Concomitant]
  6. ONDANSETRON [Suspect]
     Indication: NAUSEA
     Dosage: 4 MG, ORAL
     Route: 048
     Dates: start: 20120618, end: 20120618
  7. OMEPRAZOLE [Concomitant]
  8. SENNA (SENNA ALEXADRINA) [Concomitant]
  9. MST CONTINUE (MORPHINE SULFATE) [Concomitant]

REACTIONS (4)
  - AGITATION [None]
  - MUSCLE SPASMS [None]
  - RESTLESSNESS [None]
  - TREMOR [None]
